FAERS Safety Report 23426092 (Version 1)
Quarter: 2024Q1

REPORT INFORMATION
  Report Type: Spontaneous
  Country: US (occurrence: US)
  Receive Date: 20240122
  Receipt Date: 20240122
  Transmission Date: 20240410
  Serious: Yes (Other)
  Sender: FDA-Public Use
  Company Number: US-BoehringerIngelheim-2024-BI-002748

PATIENT
  Age: 48 Year
  Sex: Female

DRUGS (2)
  1. JARDIANCE [Suspect]
     Active Substance: EMPAGLIFLOZIN
     Indication: Diabetes mellitus
     Dates: end: 202311
  2. VICTOZA [Concomitant]
     Active Substance: LIRAGLUTIDE
     Indication: Diabetes mellitus
     Dates: end: 202311

REACTIONS (6)
  - Pituitary tumour [Unknown]
  - Blood glucose increased [Unknown]
  - Vision blurred [Unknown]
  - Kidney infection [Unknown]
  - Somnolence [Unknown]
  - Feeling abnormal [Unknown]
